FAERS Safety Report 19649102 (Version 3)
Quarter: 2021Q3

REPORT INFORMATION
  Report Type: Spontaneous
  Country: GB (occurrence: GB)
  Receive Date: 20210802
  Receipt Date: 20210818
  Transmission Date: 20211014
  Serious: No
  Sender: FDA-Public Use
  Company Number: GB-AMGEN-GBRSP2021114936

PATIENT
  Age: 21 Year
  Sex: Male

DRUGS (1)
  1. IMLYGIC [Suspect]
     Active Substance: TALIMOGENE LAHERPAREPVEC
     Indication: METASTATIC MALIGNANT MELANOMA
     Dosage: UNK
     Route: 026

REACTIONS (1)
  - Herpes simplex [Recovering/Resolving]

NARRATIVE: CASE EVENT DATE: 20210715
